FAERS Safety Report 6035395-9 (Version None)
Quarter: 2009Q1

REPORT INFORMATION
  Report Type: 
  Country: None (occurrence: None)
  Receive Date: 20090112
  Receipt Date: 20090112
  Transmission Date: 20090719
  Serious: Yes (Other)
  Sender: FDA-Public Use
  Company Number: None

PATIENT
  Age: 57 Year
  Sex: Female
  Weight: 77.1115 kg

DRUGS (9)
  1. CYMBALTA [Suspect]
     Indication: DEPRESSION
     Dosage: 30 MG QD PO
     Route: 048
     Dates: start: 20081107, end: 20081120
  2. CYMBALTA [Suspect]
     Indication: RADICULOPATHY
     Dosage: 60 MG QD PO
     Route: 048
     Dates: start: 20081121
  3. SYNTHROID [Concomitant]
  4. NAPRELAN [Concomitant]
  5. LIPITOR [Concomitant]
  6. PREVACID [Concomitant]
  7. ESTRATEST LOZOL [Concomitant]
  8. K-DUR [Concomitant]
  9. WELLBUTRIN XL [Concomitant]

REACTIONS (1)
  - RETINAL TEAR [None]
